FAERS Safety Report 7450353-5 (Version None)
Quarter: 2011Q2

REPORT INFORMATION
  Report Type: 
  Country: None (occurrence: None)
  Receive Date: 20110429
  Receipt Date: 20110429
  Transmission Date: 20111010
  Serious: No
  Sender: FDA-Public Use
  Company Number: None

PATIENT
  Sex: Female

DRUGS (1)
  1. CIPROFLOXACIN [Suspect]
     Dosage: 10 DAYS BID PO
     Route: 048
     Dates: start: 20110423, end: 20110425

REACTIONS (3)
  - MYALGIA [None]
  - PAIN IN EXTREMITY [None]
  - ARTHRALGIA [None]
